FAERS Safety Report 11066655 (Version 1)
Quarter: 2015Q2

REPORT INFORMATION
  Report Type: Spontaneous
  Country: None (occurrence: None)
  Receive Date: 20150422
  Receipt Date: 20150422
  Transmission Date: 20150821
  Serious: Yes (Hospitalization)
  Sender: FDA-Public Use
  Company Number: US-BIOTEST-T 153/15

PATIENT
  Age: 26 Year
  Sex: Male

DRUGS (1)
  1. IVIG US [Suspect]
     Active Substance: HUMAN IMMUNOGLOBULIN G
     Indication: ACQUIRED VON WILLEBRAND^S DISEASE
     Route: 041

REACTIONS (1)
  - Drug ineffective for unapproved indication [None]
